FAERS Safety Report 23931383 (Version 1)
Quarter: 2024Q2

REPORT INFORMATION
  Report Type: Spontaneous
  Country: AU (occurrence: AU)
  Receive Date: 20240603
  Receipt Date: 20240603
  Transmission Date: 20240716
  Serious: Yes (Hospitalization)
  Sender: FDA-Public Use
  Company Number: AU-AstraZeneca-2023A206862

PATIENT
  Age: 46 Year
  Sex: Female

DRUGS (117)
  1. CAPIVASERTIB [Suspect]
     Active Substance: CAPIVASERTIB
     Dosage: 200 MG INTERVAL: 1 DAY
     Route: 065
     Dates: start: 20220218, end: 20220218
  2. CAPIVASERTIB [Suspect]
     Active Substance: CAPIVASERTIB
     Dosage: 400 MG INTERVAL: 1
     Route: 048
     Dates: start: 20220403, end: 20220403
  3. CAPIVASERTIB [Suspect]
     Active Substance: CAPIVASERTIB
     Dosage: 400 MG INTERVAL: 1 DAY
     Route: 048
     Dates: start: 20220227, end: 20220228
  4. CAPIVASERTIB [Suspect]
     Active Substance: CAPIVASERTIB
     Dosage: 400 MG INTERVAL: 1 DAY
     Route: 048
     Dates: start: 20220311, end: 20220311
  5. CAPIVASERTIB [Suspect]
     Active Substance: CAPIVASERTIB
     Dosage: 400 MG INTERVAL: 1 DAY
     Route: 048
     Dates: start: 20220311, end: 20220311
  6. CAPIVASERTIB [Suspect]
     Active Substance: CAPIVASERTIB
     Dosage: 800 MG  INTERVAL: 1 DAY
     Route: 048
     Dates: start: 20220401, end: 20220402
  7. CAPIVASERTIB [Suspect]
     Active Substance: CAPIVASERTIB
     Indication: Breast cancer metastatic
     Dosage: 800 MG INTERVAL: 1 DAY
     Route: 048
     Dates: start: 20230806
  8. CAPIVASERTIB [Suspect]
     Active Substance: CAPIVASERTIB
     Dosage: 800 MG INTERVAL: 1 DAY
     Route: 048
     Dates: start: 20220225, end: 20220226
  9. CAPIVASERTIB [Suspect]
     Active Substance: CAPIVASERTIB
     Dosage: 800 MG INTERVAL: 1 DAY
     Route: 048
     Dates: start: 20220304, end: 20220307
  10. CAPIVASERTIB [Suspect]
     Active Substance: CAPIVASERTIB
     Dosage: 800 MG INTERVAL: 1 DAY
     Route: 048
     Dates: start: 20220304, end: 20220307
  11. CAPIVASERTIB [Suspect]
     Active Substance: CAPIVASERTIB
     Dosage: 800 MG INTERVAL: 1 DAY
     Route: 048
     Dates: start: 20220312, end: 20220314
  12. CAPIVASERTIB [Suspect]
     Active Substance: CAPIVASERTIB
     Dosage: 800 MG INTERVAL: 1 DAY
     Route: 048
     Dates: start: 20220318, end: 20220320
  13. CAPIVASERTIB [Suspect]
     Active Substance: CAPIVASERTIB
     Dosage: 800 MG INTERVAL: 1 DAY
     Route: 048
     Dates: start: 20220325, end: 20220328
  14. CAPIVASERTIB [Suspect]
     Active Substance: CAPIVASERTIB
     Dosage: 800 MG INTERVAL: 1 DAY
     Route: 048
     Dates: start: 20220404, end: 20220404
  15. CAPIVASERTIB [Suspect]
     Active Substance: CAPIVASERTIB
     Dosage: 800 MG INTERVAL: 1 DAY
     Route: 048
     Dates: start: 20220428, end: 20220501
  16. CAPIVASERTIB [Suspect]
     Active Substance: CAPIVASERTIB
     Dosage: 800 MG INTERVAL: 1 DAY
     Route: 048
     Dates: start: 20220505, end: 20220508
  17. CAPIVASERTIB [Suspect]
     Active Substance: CAPIVASERTIB
     Dosage: 800 MG INTERVAL: 1 DAY
     Route: 048
     Dates: start: 20220513, end: 20220513
  18. CAPIVASERTIB [Suspect]
     Active Substance: CAPIVASERTIB
     Dosage: 800 MG INTERVAL: 1 DAY
     Route: 048
     Dates: start: 20220514, end: 20220514
  19. CAPIVASERTIB [Suspect]
     Active Substance: CAPIVASERTIB
     Dosage: 800 MG INTERVAL: 1 DAY
     Route: 048
     Dates: start: 20220515, end: 20220516
  20. CAPIVASERTIB [Suspect]
     Active Substance: CAPIVASERTIB
     Dosage: 800 MG INTERVAL: 1 DAY
     Route: 048
     Dates: start: 20220520, end: 20220523
  21. CAPIVASERTIB [Suspect]
     Active Substance: CAPIVASERTIB
     Dosage: 800 MG INTERVAL: 1 DAY
     Route: 048
     Dates: start: 20220527, end: 20220527
  22. CAPIVASERTIB [Suspect]
     Active Substance: CAPIVASERTIB
     Dosage: 800 MG INTERVAL: 1 DAY
     Route: 048
     Dates: start: 20220603, end: 20220606
  23. CAPIVASERTIB [Suspect]
     Active Substance: CAPIVASERTIB
     Dosage: 800 MG INTERVAL: 1 DAY
     Route: 048
     Dates: start: 20220610, end: 20220613
  24. CAPIVASERTIB [Suspect]
     Active Substance: CAPIVASERTIB
     Dosage: 800 MG INTERVAL: 1 DAY
     Route: 048
     Dates: start: 20220617, end: 20220620
  25. CAPIVASERTIB [Suspect]
     Active Substance: CAPIVASERTIB
     Dosage: 800 MG INTERVAL: 1 DAY
     Route: 048
     Dates: start: 20220624, end: 20220627
  26. CAPIVASERTIB [Suspect]
     Active Substance: CAPIVASERTIB
     Dosage: 800 MG INTERVAL: 1 DAY
     Route: 048
     Dates: start: 20220701, end: 20220704
  27. CAPIVASERTIB [Suspect]
     Active Substance: CAPIVASERTIB
     Dosage: 800 MG INTERVAL: 1 DAY
     Route: 048
     Dates: start: 20220708, end: 20220711
  28. CAPIVASERTIB [Suspect]
     Active Substance: CAPIVASERTIB
     Dosage: 800 MG INTERVAL: 1 DAY
     Route: 048
     Dates: start: 20220715, end: 20220718
  29. CAPIVASERTIB [Suspect]
     Active Substance: CAPIVASERTIB
     Dosage: 800 MG INTERVAL: 1 DAY
     Route: 048
     Dates: start: 20220722, end: 20220725
  30. CAPIVASERTIB [Suspect]
     Active Substance: CAPIVASERTIB
     Dosage: 800 MG INTERVAL: 1 DAY
     Route: 048
     Dates: start: 20220729, end: 20220801
  31. CAPIVASERTIB [Suspect]
     Active Substance: CAPIVASERTIB
     Dosage: 800 MG INTERVAL: 1 DAY
     Route: 048
     Dates: start: 20220805, end: 20220815
  32. CAPIVASERTIB [Suspect]
     Active Substance: CAPIVASERTIB
     Dosage: 800 MG INTERVAL: 1 DAY
     Route: 048
     Dates: start: 20220819, end: 20220822
  33. CAPIVASERTIB [Suspect]
     Active Substance: CAPIVASERTIB
     Dosage: 800 MG INTERVAL: 1 DAY
     Route: 048
     Dates: start: 20220826, end: 20220829
  34. CAPIVASERTIB [Suspect]
     Active Substance: CAPIVASERTIB
     Dosage: 800 MG INTERVAL: 1 DAY
     Route: 048
     Dates: start: 20220902, end: 20220905
  35. CAPIVASERTIB [Suspect]
     Active Substance: CAPIVASERTIB
     Dosage: 800 MG INTERVAL: 1 DAY
     Route: 048
     Dates: start: 20220909, end: 20220912
  36. CAPIVASERTIB [Suspect]
     Active Substance: CAPIVASERTIB
     Dosage: 800 MG INTERVAL: 1 DAY
     Route: 048
     Dates: start: 20220916, end: 20220916
  37. CAPIVASERTIB [Suspect]
     Active Substance: CAPIVASERTIB
     Dosage: 800 MG INTERVAL: 1 DAY
     Route: 048
     Dates: start: 20220917, end: 20220919
  38. CAPIVASERTIB [Suspect]
     Active Substance: CAPIVASERTIB
     Dosage: 800 MG INTERVAL: 1 DAY
     Route: 048
     Dates: start: 20220923, end: 20220926
  39. CAPIVASERTIB [Suspect]
     Active Substance: CAPIVASERTIB
     Dosage: 800 MG INTERVAL: 1 DAY
     Route: 048
     Dates: start: 20220923, end: 20221003
  40. CAPIVASERTIB [Suspect]
     Active Substance: CAPIVASERTIB
     Dosage: 800 MG INTERVAL: 1 DAY
     Route: 048
     Dates: start: 20220930, end: 20221003
  41. CAPIVASERTIB [Suspect]
     Active Substance: CAPIVASERTIB
     Dosage: 800 MG INTERVAL: 1 DAY
     Route: 048
     Dates: start: 20220930, end: 20221003
  42. CAPIVASERTIB [Suspect]
     Active Substance: CAPIVASERTIB
     Dosage: 800 MG INTERVAL: 1 DAY
     Route: 048
     Dates: start: 20220930, end: 20221003
  43. CAPIVASERTIB [Suspect]
     Active Substance: CAPIVASERTIB
     Dosage: 800 MG INTERVAL: 1 DAY
     Route: 048
     Dates: start: 20220930, end: 20221003
  44. CAPIVASERTIB [Suspect]
     Active Substance: CAPIVASERTIB
     Dosage: 800 MG INTERVAL: 1 DAY
     Route: 048
     Dates: start: 20220930, end: 20221003
  45. CAPIVASERTIB [Suspect]
     Active Substance: CAPIVASERTIB
     Dosage: 800 MG INTERVAL: 1 DAY
     Route: 048
     Dates: start: 20220930, end: 20221003
  46. CAPIVASERTIB [Suspect]
     Active Substance: CAPIVASERTIB
     Dosage: 800 MG ; INTERVAL: 1 DAY
     Route: 048
     Dates: start: 20220408, end: 20220408
  47. CAPIVASERTIB [Suspect]
     Active Substance: CAPIVASERTIB
     Dosage: 800 MG INTERVAL: 1
     Route: 048
     Dates: start: 20220410, end: 20220411
  48. CAPIVASERTIB [Suspect]
     Active Substance: CAPIVASERTIB
     Dosage: 800 MG INTERVAL: 1 DAY
     Route: 048
     Dates: start: 20220404, end: 20220404
  49. CAPIVASERTIB [Suspect]
     Active Substance: CAPIVASERTIB
     Dosage: 800 MG INTERVAL: 1 DAY
     Route: 048
     Dates: start: 20220414, end: 20220417
  50. CAPIVASERTIB [Suspect]
     Active Substance: CAPIVASERTIB
     Dosage: 800 MG INTERVAL: 1 DAY
     Route: 048
     Dates: start: 20220421, end: 20220424
  51. FULVESTRANT [Suspect]
     Active Substance: FULVESTRANT
     Indication: Breast cancer metastatic
     Dosage: 500 MG
     Route: 030
     Dates: start: 20220218, end: 20220218
  52. FULVESTRANT [Suspect]
     Active Substance: FULVESTRANT
     Dosage: 500 MG
     Route: 030
     Dates: start: 20220304, end: 20220304
  53. FULVESTRANT [Suspect]
     Active Substance: FULVESTRANT
     Dosage: 500 MG
     Route: 030
     Dates: start: 20220318, end: 20220318
  54. FULVESTRANT [Suspect]
     Active Substance: FULVESTRANT
     Dosage: 500 MG
     Route: 030
     Dates: start: 20220610, end: 20220610
  55. FULVESTRANT [Suspect]
     Active Substance: FULVESTRANT
     Dosage: 500 MG
     Route: 030
     Dates: start: 20220902, end: 20220902
  56. FULVESTRANT [Suspect]
     Active Substance: FULVESTRANT
     Dosage: 500 MG
     Route: 030
     Dates: start: 20220930, end: 20220930
  57. FULVESTRANT [Suspect]
     Active Substance: FULVESTRANT
     Dosage: 500 MG
     Route: 030
     Dates: start: 20221028, end: 20221028
  58. FULVESTRANT [Suspect]
     Active Substance: FULVESTRANT
     Dosage: 500 MG
     Route: 030
     Dates: start: 20221130, end: 20221130
  59. FULVESTRANT [Suspect]
     Active Substance: FULVESTRANT
     Dosage: 500 MG
     Route: 030
     Dates: start: 20221223, end: 20221223
  60. FULVESTRANT [Suspect]
     Active Substance: FULVESTRANT
     Dosage: 500 MG
     Route: 030
     Dates: start: 20230125, end: 20230125
  61. FULVESTRANT [Suspect]
     Active Substance: FULVESTRANT
     Dosage: 500 MG
     Route: 030
     Dates: start: 20230223, end: 20230223
  62. FULVESTRANT [Suspect]
     Active Substance: FULVESTRANT
     Dosage: 500 MG
     Route: 030
     Dates: start: 20230322, end: 20230322
  63. FULVESTRANT [Suspect]
     Active Substance: FULVESTRANT
     Dosage: 500 MG
     Route: 030
     Dates: start: 20230420, end: 20230420
  64. FULVESTRANT [Suspect]
     Active Substance: FULVESTRANT
     Dosage: 500 MG
     Route: 030
     Dates: start: 20230517, end: 20230517
  65. FULVESTRANT [Suspect]
     Active Substance: FULVESTRANT
     Dosage: 500 MG
     Route: 030
     Dates: start: 20230614, end: 20230614
  66. FULVESTRANT [Suspect]
     Active Substance: FULVESTRANT
     Dosage: 500 MG
     Route: 030
     Dates: start: 20230713, end: 20230713
  67. FULVESTRANT [Suspect]
     Active Substance: FULVESTRANT
     Dosage: 500 MG
     Route: 030
     Dates: start: 20230808, end: 20230808
  68. FULVESTRANT [Suspect]
     Active Substance: FULVESTRANT
     Dosage: 500 MG
     Route: 065
     Dates: start: 20220708, end: 20220708
  69. FULVESTRANT [Suspect]
     Active Substance: FULVESTRANT
     Dosage: 500 MG
     Route: 065
     Dates: start: 20220805, end: 20220805
  70. PALBOCICLIB [Suspect]
     Active Substance: PALBOCICLIB
     Indication: Breast cancer metastatic
     Dosage: 125 MG INTERVAL: 1 DAY
     Route: 048
     Dates: start: 20220215
  71. PALBOCICLIB [Suspect]
     Active Substance: PALBOCICLIB
     Dosage: 125 MG INTERVAL: 1 DAY
     Route: 048
     Dates: start: 20220218, end: 20220227
  72. PALBOCICLIB [Suspect]
     Active Substance: PALBOCICLIB
     Dosage: 125 MG INTERVAL: 1 DAY
     Route: 048
     Dates: start: 20220301, end: 20220315
  73. PALBOCICLIB [Suspect]
     Active Substance: PALBOCICLIB
     Dosage: 125 MG INTERVAL: 1 DAY
     Route: 048
     Dates: start: 20220318, end: 20220320
  74. PALBOCICLIB [Suspect]
     Active Substance: PALBOCICLIB
     Dosage: 125 MG INTERVAL: 1 DAY
     Route: 048
     Dates: start: 20220322, end: 20220329
  75. PALBOCICLIB [Suspect]
     Active Substance: PALBOCICLIB
     Dosage: 125 MG INTERVAL: 1 DAY
     Route: 048
     Dates: start: 20220331, end: 20220402
  76. PALBOCICLIB [Suspect]
     Active Substance: PALBOCICLIB
     Dosage: 125 MG INTERVAL: 1 DAY
     Route: 048
     Dates: start: 20220405, end: 20220407
  77. PALBOCICLIB [Suspect]
     Active Substance: PALBOCICLIB
     Dosage: 125 MG INTERVAL: 1 DAY
     Route: 048
     Dates: start: 20220414, end: 20220417
  78. PALBOCICLIB [Suspect]
     Active Substance: PALBOCICLIB
     Dosage: 125 MG INTERVAL: 1 DAY
     Route: 048
     Dates: start: 20220419, end: 20220504
  79. PALBOCICLIB [Suspect]
     Active Substance: PALBOCICLIB
     Dosage: 125 MG INTERVAL: 1 DAY
     Route: 048
     Dates: start: 20220513, end: 20220602
  80. PALBOCICLIB [Suspect]
     Active Substance: PALBOCICLIB
     Dosage: 125 MG INTERVAL: 1 DAY
     Route: 048
     Dates: start: 20220610, end: 20220630
  81. PALBOCICLIB [Suspect]
     Active Substance: PALBOCICLIB
     Dosage: 125 MG INTERVAL: 1 DAY
     Route: 048
     Dates: start: 20220708, end: 20220825
  82. PALBOCICLIB [Suspect]
     Active Substance: PALBOCICLIB
     Dosage: 125 MG INTERVAL: 1 DAY
     Route: 048
     Dates: start: 20220902, end: 20220922
  83. PALBOCICLIB [Suspect]
     Active Substance: PALBOCICLIB
     Dosage: 125 MG INTERVAL: 1 DAY
     Route: 048
     Dates: start: 20220930, end: 20221020
  84. PALBOCICLIB [Suspect]
     Active Substance: PALBOCICLIB
     Dosage: 125 MG INTERVAL: 1 DAY
     Route: 048
     Dates: start: 20221028, end: 20221117
  85. PALBOCICLIB [Suspect]
     Active Substance: PALBOCICLIB
     Dosage: 125 MG INTERVAL: 1 DAY
     Route: 048
     Dates: start: 20221130, end: 20221220
  86. PALBOCICLIB [Suspect]
     Active Substance: PALBOCICLIB
     Dosage: 125 MG INTERVAL: 1 DAY
     Route: 048
     Dates: start: 20221229, end: 20230118
  87. PALBOCICLIB [Suspect]
     Active Substance: PALBOCICLIB
     Dosage: 125 MG INTERVAL: 1 DAY
     Route: 048
     Dates: start: 20230125, end: 20230214
  88. PALBOCICLIB [Suspect]
     Active Substance: PALBOCICLIB
     Dosage: 125 MG INTERVAL: 1 DAY
     Route: 048
     Dates: start: 20230223, end: 20230315
  89. PALBOCICLIB [Suspect]
     Active Substance: PALBOCICLIB
     Dosage: 125 MG INTERVAL: 1 DAY
     Route: 048
     Dates: start: 20230322, end: 20230326
  90. PALBOCICLIB [Suspect]
     Active Substance: PALBOCICLIB
     Dosage: 125 MG INTERVAL: 1 DAY
     Route: 048
     Dates: start: 20230420, end: 20230502
  91. PALBOCICLIB [Suspect]
     Active Substance: PALBOCICLIB
     Dosage: 125 MG INTERVAL: 1 DAY
     Route: 048
     Dates: start: 20230504, end: 20230510
  92. PALBOCICLIB [Suspect]
     Active Substance: PALBOCICLIB
     Dosage: 125 MG INTERVAL: 1 DAY
     Route: 048
     Dates: start: 20230517, end: 20230606
  93. PALBOCICLIB [Suspect]
     Active Substance: PALBOCICLIB
     Dosage: 125 MG INTERVAL: 1 DAY
     Route: 048
     Dates: start: 20230713, end: 20230802
  94. PALBOCICLIB [Suspect]
     Active Substance: PALBOCICLIB
     Dosage: 125 MG INTERVAL: 1 DAY
     Route: 048
     Dates: start: 20230808
  95. PALBOCICLIB [Suspect]
     Active Substance: PALBOCICLIB
     Dosage: 125 MG INTERVAL: 1 DAY
     Route: 065
     Dates: start: 20230328, end: 20230411
  96. ALPRAZOLAM [Concomitant]
     Active Substance: ALPRAZOLAM
     Indication: Migraine
     Dosage: 80 MG
     Route: 048
     Dates: start: 2006
  97. AMOXICILLIN [Concomitant]
     Active Substance: AMOXICILLIN
     Indication: Infection
     Dosage: 1500 MG INTERVAL: 1 DAY
     Route: 048
     Dates: start: 20230413
  98. AMOXICILLIN [Concomitant]
     Active Substance: AMOXICILLIN
     Indication: Lower respiratory tract infection
     Dosage: 1500 MG INTERVAL: 1 DAY
     Route: 048
     Dates: start: 20230413
  99. CEPHALEXIN [Concomitant]
     Active Substance: CEPHALEXIN
     Dosage: 250 MG  INTERVAL: 1
     Route: 048
     Dates: start: 20220519, end: 20220523
  100. CEPHALEXIN [Concomitant]
     Active Substance: CEPHALEXIN
     Dosage: 250 MG  INTERVAL: 1
     Route: 048
     Dates: start: 20230116, end: 20230120
  101. CEPHALEXIN [Concomitant]
     Active Substance: CEPHALEXIN
     Indication: Urinary tract infection
     Dosage: 250 MG  INTERVAL: 1
     Route: 048
     Dates: start: 20220610
  102. CEPHALEXIN [Concomitant]
     Active Substance: CEPHALEXIN
     Dosage: 500 MG  INTERVAL: 1
     Route: 048
     Dates: start: 20220421, end: 20220425
  103. CEPHALEXIN MONOHYDRATE [Concomitant]
     Active Substance: CEPHALEXIN MONOHYDRATE
     Indication: Urinary tract infection
     Dosage: UNK
     Route: 048
     Dates: start: 20220327
  104. GABAPENTIN [Concomitant]
     Active Substance: GABAPENTIN
     Indication: Pain
     Dosage: 50 MG INTERVAL: 1 DAY
     Route: 048
     Dates: start: 20220919
  105. LOPERAMIDE [Concomitant]
     Active Substance: LOPERAMIDE
     Indication: Diarrhoea
     Dosage: UNK
     Route: 065
     Dates: start: 20220708
  106. LORAZEPAM [Concomitant]
     Active Substance: LORAZEPAM
     Indication: Anxiety
     Dosage: 2.5 MG INTERVAL: 1 DAY
     Route: 048
     Dates: start: 20220207
  107. METOCLOPRAMIDE [Concomitant]
     Active Substance: METOCLOPRAMIDE
     Indication: Migraine
     Dosage: 10 MG
     Route: 030
     Dates: start: 1991
  108. MIRTAZAPINE [Concomitant]
     Active Substance: MIRTAZAPINE
     Indication: Depression
     Dosage: 30 MG INTERVAL: 1 DAY
     Route: 048
     Dates: start: 20230518
  109. MORPHINE [Concomitant]
     Active Substance: MORPHINE
     Indication: Migraine
     Dosage: 15 MG
     Route: 065
     Dates: start: 1991
  110. ONDANSETRON [Concomitant]
     Active Substance: ONDANSETRON
     Indication: Vomiting
     Dosage: 4 MG
     Route: 048
     Dates: start: 20230223
  111. PANTOPRAZOLE [Concomitant]
     Active Substance: PANTOPRAZOLE
     Indication: Gastrooesophageal reflux disease
     Dosage: UNK
     Route: 065
     Dates: start: 20230607
  112. PANTOPRAZOLE SODIUM [Concomitant]
     Active Substance: PANTOPRAZOLE SODIUM
     Indication: Gastrooesophageal reflux disease
     Dosage: 40 MG INTERVAL: 1 DAY
     Route: 048
     Dates: start: 20230607
  113. POTASSIUM [Concomitant]
     Active Substance: POTASSIUM
     Indication: Hypokalaemia
     Dosage: 28 MM INTERVAL: 1 DAY
     Route: 048
     Dates: start: 20221201
  114. POTASSIUM CHLORIDE [Concomitant]
     Active Substance: POTASSIUM CHLORIDE
     Indication: Hypokalaemia
     Dosage: 1200 MG  INTERVAL: 1 DAY
     Route: 048
     Dates: start: 20220215
  115. PREGABALIN [Concomitant]
     Active Substance: PREGABALIN
     Indication: Pain
     Dosage: 50 MG ; INTERVAL: 1 DAY
     Route: 048
     Dates: start: 20220530
  116. PROMETHAZINE [Concomitant]
     Active Substance: PROMETHAZINE HYDROCHLORIDE
     Indication: Migraine
     Dosage: UNK
     Route: 065
     Dates: start: 2000
  117. SERTRALINE HYDROCHLORIDE [Concomitant]
     Active Substance: SERTRALINE HYDROCHLORIDE
     Indication: Depressed mood
     Dosage: UNK
     Route: 065
     Dates: start: 20230220

REACTIONS (1)
  - Peroneal nerve palsy [Not Recovered/Not Resolved]

NARRATIVE: CASE EVENT DATE: 20230903
